FAERS Safety Report 16597485 (Version 1)
Quarter: 2019Q3

REPORT INFORMATION
  Report Type: Spontaneous
  Country: US (occurrence: US)
  Receive Date: 20190718
  Receipt Date: 20190718
  Transmission Date: 20191004
  Serious: Yes (Disabling)
  Sender: FDA-Public Use
  Company Number: None

PATIENT
  Age: 35 Year
  Sex: Female
  Weight: 51.3 kg

DRUGS (1)
  1. RITUXAN [Suspect]
     Active Substance: RITUXIMAB
     Indication: MULTIPLE SCLEROSIS
     Dosage: ?          QUANTITY:2 INJECTION(S);OTHER FREQUENCY:2 A YEARS;?
     Route: 042
     Dates: start: 20171114, end: 20190514

REACTIONS (9)
  - Nausea [None]
  - Dry eye [None]
  - Dry skin [None]
  - Headache [None]
  - Swelling [None]
  - Decreased appetite [None]
  - Insomnia [None]
  - Abdominal pain upper [None]
  - Dizziness [None]

NARRATIVE: CASE EVENT DATE: 20171121
